FAERS Safety Report 13432720 (Version 4)
Quarter: 2017Q2

REPORT INFORMATION
  Report Type: Spontaneous
  Country: IT (occurrence: IT)
  Receive Date: 20170412
  Receipt Date: 20170419
  Transmission Date: 20170830
  Serious: Yes (Hospitalization)
  Sender: FDA-Public Use
  Company Number: IT-TEVA-756923ACC

PATIENT
  Age: 52 Year
  Sex: Female

DRUGS (6)
  1. QUETIAPINA TEVA - 200 MG COMPRESSE RIVESTITE CON FILM- TEVA ITALIA SRL [Suspect]
     Active Substance: QUETIAPINE
     Indication: SUICIDAL IDEATION
     Route: 048
     Dates: start: 20170116, end: 20170116
  2. METFORMINA TEVA - 500 MG CPR RIVESTITE - TEVA ITALIA S.R.L. [Suspect]
     Active Substance: METFORMIN HYDROCHLORIDE
     Indication: SUICIDAL IDEATION
     Route: 048
     Dates: start: 20170116, end: 20170116
  3. DELORAZEPAM AUROBINDO ITALIA - 2 MG COMPRESSE [Suspect]
     Active Substance: DELORAZEPAM
     Indication: SUICIDAL IDEATION
     Route: 048
     Dates: start: 20170116, end: 20170116
  4. VALDORM - 30 MG CAPSULE - VALEAS SPA INDUSTRIA CHIMICA E FARMACEUTICA [Suspect]
     Active Substance: FLURAZEPAM HYDROCHLORIDE
     Indication: SUICIDAL IDEATION
     Route: 048
     Dates: start: 20170116, end: 20170116
  5. WELLBUTRIN [Suspect]
     Active Substance: BUPROPION HYDROCHLORIDE
     Indication: SUICIDAL IDEATION
     Route: 048
     Dates: start: 20170116, end: 20170116
  6. LASIX [Suspect]
     Active Substance: FUROSEMIDE
     Indication: SUICIDAL IDEATION
     Route: 048
     Dates: start: 20170116, end: 20170116

REACTIONS (2)
  - Toxicity to various agents [Recovering/Resolving]
  - Drug use disorder [Unknown]

NARRATIVE: CASE EVENT DATE: 20170116
